FAERS Safety Report 7405776-7 (Version None)
Quarter: 2011Q2

REPORT INFORMATION
  Report Type: 
  Country: None (occurrence: None)
  Receive Date: 20110411
  Receipt Date: 20110331
  Transmission Date: 20111010
  Serious: Yes (Other)
  Sender: FDA-Public Use
  Company Number: JP-PFIZER INC-2011078017

PATIENT
  Age: 81 Year
  Sex: Female

DRUGS (8)
  1. CELECOX [Suspect]
     Indication: PAIN
     Dosage: 100 MG, 2X/DAY
     Route: 048
     Dates: start: 20110212, end: 20110222
  2. ALOSENN [Concomitant]
     Dosage: UNK
     Route: 048
     Dates: start: 20110212, end: 20110214
  3. MONILAC [Concomitant]
     Dosage: UNK
     Route: 048
     Dates: start: 20110212
  4. TAKEPRON [Concomitant]
     Dosage: UNK
     Dates: start: 20110212, end: 20110214
  5. LAC B [Concomitant]
     Route: 048
  6. INSULIN ASPART [Concomitant]
     Dosage: UNK
     Dates: start: 20110212, end: 20110228
  7. ROHYPNOL [Concomitant]
     Indication: INSOMNIA
     Dosage: UNK
     Dates: start: 20110217, end: 20110218
  8. MYSLEE [Concomitant]
     Dosage: 5 MG, UNK
     Dates: start: 20110212

REACTIONS (1)
  - DRUG ERUPTION [None]
